FAERS Safety Report 4913706-2 (Version None)
Quarter: 2006Q1

REPORT INFORMATION
  Report Type: 
  Country: None (occurrence: None)
  Receive Date: 20060210
  Receipt Date: 20010718
  Transmission Date: 20060701
  Serious: Yes (Congenital Anomaly)
  Sender: FDA-Public Use
  Company Number: A0156105A

PATIENT
  Sex: Female
  Weight: 3.1752 kg

DRUGS (4)
  1. LAMICTAL [Suspect]
     Indication: COMPLEX REGIONAL PAIN SYNDROME
     Dosage: 600 MG / PER DAY / TRANSPLACENTARY
     Route: 064
     Dates: end: 20001115
  2. OXYCODONE HCL [Concomitant]
  3. ASTHMA MEDICATION [Concomitant]
  4. ORAL CONTRACEPTIVE [Concomitant]

REACTIONS (3)
  - ATRIAL SEPTAL DEFECT [None]
  - DRUG EXPOSURE DURING PREGNANCY [None]
  - VENTRICULAR SEPTAL DEFECT [None]
